FAERS Safety Report 8942491 (Version 3)
Quarter: 2013Q1

REPORT INFORMATION
  Report Type: Spontaneous
  Country: DE (occurrence: DE)
  Receive Date: 20121204
  Receipt Date: 20130206
  Transmission Date: 20140127
  Serious: Yes (Other)
  Sender: FDA-Public Use
  Company Number: PHHY2012DE108758

PATIENT
  Age: 75 Year
  Sex: Male

DRUGS (2)
  1. CO-DIOVAN [Suspect]
     Indication: HYPERTENSION
     Dosage: 1 DF(160MG VALSARTAN/ 12.5 MG HYDROCHLORTHIAZIDE), QD
     Route: 048
  2. TOREM [Concomitant]
     Indication: POLYURIA
     Dosage: UNK UKN, UNK

REACTIONS (6)
  - Fracture [Unknown]
  - Pain [Unknown]
  - Fall [Unknown]
  - Creatinine renal clearance decreased [Recovering/Resolving]
  - Blood creatinine increased [None]
  - Local swelling [Unknown]
